FAERS Safety Report 23942873 (Version 1)
Quarter: 2024Q2

REPORT INFORMATION
  Report Type: Spontaneous
  Country: CN (occurrence: CN)
  Receive Date: 20240605
  Receipt Date: 20240605
  Transmission Date: 20240716
  Serious: Yes (Hospitalization, Other)
  Sender: FDA-Public Use
  Company Number: CN-MLMSERVICE-20161202-0520172-1

PATIENT

DRUGS (1)
  1. VALACYCLOVIR HYDROCHLORIDE [Suspect]
     Active Substance: VALACYCLOVIR HYDROCHLORIDE
     Indication: Herpes simplex
     Dosage: UNK
     Route: 048

REACTIONS (18)
  - Acute kidney injury [Recovered/Resolved]
  - Nephropathy [Recovered/Resolved]
  - Back pain [Recovered/Resolved]
  - Abdominal pain lower [Recovered/Resolved]
  - Dysuria [Recovered/Resolved]
  - Hypouricaemia [Recovered/Resolved]
  - Lung disorder [Recovered/Resolved]
  - Calcinosis [Recovered/Resolved]
  - Hyperplasia [Recovered/Resolved]
  - Kidney fibrosis [Recovered/Resolved]
  - Renal tubular disorder [Recovered/Resolved]
  - Oedematous kidney [Recovered/Resolved]
  - Renal artery stenosis [Recovered/Resolved]
  - Renal tubular atrophy [Recovered/Resolved]
  - Renal disorder [Recovered/Resolved]
  - Obstructive nephropathy [Recovered/Resolved]
  - Renal tubular injury [Recovered/Resolved]
  - Skin infection [Recovered/Resolved]
